FAERS Safety Report 23275178 (Version 1)
Quarter: 2023Q4

REPORT INFORMATION
  Report Type: Spontaneous
  Country: SE (occurrence: SE)
  Receive Date: 20231208
  Receipt Date: 20231208
  Transmission Date: 20240110
  Serious: Yes (Hospitalization, Other)
  Sender: FDA-Public Use
  Company Number: SE-002147023-NVSC2023SE251290

PATIENT
  Sex: Male

DRUGS (12)
  1. TACROLIMUS [Suspect]
     Active Substance: TACROLIMUS
     Indication: Product used for unknown indication
     Dosage: UNK UNK, UNKNOWN FREQ.
     Route: 065
  2. RUXOLITINIB [Suspect]
     Active Substance: RUXOLITINIB
     Indication: Haemophagocytic lymphohistiocytosis
     Route: 065
  3. RUXOLITINIB [Suspect]
     Active Substance: RUXOLITINIB
     Indication: Still^s disease
  4. CYCLOSPORINE [Suspect]
     Active Substance: CYCLOSPORINE
     Indication: Product used for unknown indication
     Dosage: UNK UNK, UNKNOWN FREQ. (DURING WINTER 2022/2023)
     Route: 065
  5. PREDNISOLONE [Concomitant]
     Active Substance: PREDNISOLONE
     Indication: Product used for unknown indication
     Dosage: 5 MG, ONCE DAILY (LOW DOSAGE)
     Route: 065
  6. RAPAMUNE [Concomitant]
     Active Substance: SIROLIMUS
     Indication: Product used for unknown indication
     Dosage: UNK UNK, UNKNOWN FREQ. ((START DATE- 15TH OF NOVEMBER) (AIMING AT KONC 5- 7)
     Route: 065
  7. ORENCIA [Concomitant]
     Active Substance: ABATACEPT
     Indication: Product used for unknown indication
     Dosage: UNK UNK, UNKNOWN FREQ. (X1)
     Route: 065
  8. TOCILIZUMAB [Concomitant]
     Active Substance: TOCILIZUMAB
     Indication: Product used for unknown indication
     Dosage: UNK UNK, UNKNOWN FREQ. (COMBINED WITH STEROIDS)
     Route: 065
  9. ANAKINRA [Concomitant]
     Active Substance: ANAKINRA
     Indication: Product used for unknown indication
     Dosage: 5 MG/KG, UNKNOWN FREQ. (GOOD RESPONSE TO HIGH IV DOSAGE. SUB-Q ADMINISTRATION DID NOT WORK)
     Route: 065
  10. ANAKINRA [Concomitant]
     Active Substance: ANAKINRA
     Route: 065
  11. ETOPOSIDE [Concomitant]
     Active Substance: ETOPOSIDE
     Indication: Product used for unknown indication
     Dosage: 75 MG/M2 (START DATE- 3RD OF NOVEMBER)
     Route: 065
  12. ETOPOSIDE [Concomitant]
     Active Substance: ETOPOSIDE
     Dosage: 100 MG/M2, UNKNOWN FREQ. (10TH OF NOVEMBER)
     Route: 065

REACTIONS (20)
  - Posterior reversible encephalopathy syndrome [Unknown]
  - Juvenile idiopathic arthritis [Unknown]
  - Hypertonia [Unknown]
  - Headache [Unknown]
  - Vomiting [Unknown]
  - Rash pruritic [Unknown]
  - Hair growth abnormal [Unknown]
  - Serum ferritin increased [Unknown]
  - Anaemia [Unknown]
  - Pain [Unknown]
  - Myalgia [Unknown]
  - Rash [Unknown]
  - Fatigue [Unknown]
  - White blood cell count decreased [Unknown]
  - General physical health deterioration [Unknown]
  - Fear of injection [Unknown]
  - Pyrexia [Unknown]
  - Influenza [Unknown]
  - Lymphadenopathy [Unknown]
  - Platelet count decreased [Unknown]

NARRATIVE: CASE EVENT DATE: 20230401
